FAERS Safety Report 5634148-0 (Version None)
Quarter: 2008Q1

REPORT INFORMATION
  Report Type: 
  Country: None (occurrence: None)
  Receive Date: 20080131
  Receipt Date: 20070103
  Transmission Date: 20080703
  Serious: Yes (Other)
  Sender: FDA-Public Use
  Company Number: 150681USA

PATIENT
  Age: 30 Year
  Sex: Female
  Weight: 72.1219 kg

DRUGS (1)
  1. COPAXONE [Suspect]
     Indication: MULTIPLE SCLEROSIS
     Dosage: (20 MG), SUBCUTANEOUS
     Route: 058
     Dates: start: 20020502, end: 20061201

REACTIONS (3)
  - INJECTION SITE NECROSIS [None]
  - SKIN DISCOLOURATION [None]
  - SKIN ULCER [None]
